FAERS Safety Report 5750465-8 (Version None)
Quarter: 2008Q2

REPORT INFORMATION
  Report Type: 
  Country: None (occurrence: None)
  Receive Date: 20080528
  Receipt Date: 20070828
  Transmission Date: 20081010
  Serious: No
  Sender: FDA-Public Use
  Company Number: US-KINGPHARMUSA00001-K200701104

PATIENT

DRUGS (2)
  1. AVINZA [Suspect]
     Indication: BACK PAIN
     Dosage: 120 MG, QD
  2. LORTAB [Concomitant]
     Dosage: 10 MG, UNK

REACTIONS (1)
  - HYPERHIDROSIS [None]
